FAERS Safety Report 16470975 (Version 1)
Quarter: 2019Q2

REPORT INFORMATION
  Report Type: Spontaneous
  Country: US (occurrence: US)
  Receive Date: 20190624
  Receipt Date: 20190624
  Transmission Date: 20190711
  Serious: Yes (Other)
  Sender: FDA-Public Use
  Company Number: US-PFIZER INC-2019266843

PATIENT
  Age: 62 Year
  Sex: Male

DRUGS (1)
  1. BOSULIF [Suspect]
     Active Substance: BOSUTINIB MONOHYDRATE
     Indication: MYELOID LEUKAEMIA
     Dosage: UNK

REACTIONS (3)
  - Hepatotoxicity [Unknown]
  - Toxicity to various agents [Unknown]
  - Haematotoxicity [Unknown]
